FAERS Safety Report 6434336-X (Version None)
Quarter: 2009Q4

REPORT INFORMATION
  Report Type: 
  Country: None (occurrence: None)
  Receive Date: 20091110
  Receipt Date: 20090504
  Transmission Date: 20100525
  Serious: No
  Sender: FDA-Public Use
  Company Number: US-ASTRAZENECA-2009SE08985

PATIENT

DRUGS (2)
  1. PRILOSEC OTC [Suspect]
     Route: 048
  2. WARFARIN SODIUM [Concomitant]

REACTIONS (2)
  - INTERNATIONAL NORMALISED RATIO ABNORMAL [None]
  - LABELLED DRUG-DRUG INTERACTION MEDICATION ERROR [None]
